FAERS Safety Report 7986482-7 (Version None)
Quarter: 2011Q4

REPORT INFORMATION
  Report Type: 
  Country: None (occurrence: None)
  Receive Date: 20111216
  Receipt Date: 20111027
  Transmission Date: 20120403
  Serious: No
  Sender: FDA-Public Use
  Company Number: US-BRISTOL-MYERS SQUIBB COMPANY-15519754

PATIENT
  Age: 25 Year
  Sex: Female
  Weight: 53 kg

DRUGS (26)
  1. PREVACID [Concomitant]
  2. CYMBALTA [Concomitant]
     Route: 048
  3. MULTI-VITAMIN [Concomitant]
     Dosage: 1DF:1 TAB
     Route: 048
  4. IBUPROFEN [Concomitant]
  5. ISONIAZID [Concomitant]
     Dosage: 1 CAPS.
     Route: 048
  6. OXYCODONE HCL [Concomitant]
  7. ZYPREXA [Suspect]
     Indication: BORDERLINE PERSONALITY DISORDER
     Dosage: HS,2.5MG,PRN.
  8. ABILIFY [Suspect]
     Indication: BIPOLAR I DISORDER
     Dosage: DOSE:5MG,Q AM.DOSE:20MG DAILY.
  9. BACLOFEN [Concomitant]
     Dosage: TAB
     Route: 048
  10. CLONAZEPAM [Concomitant]
  11. VICODIN [Concomitant]
     Indication: DYSMENORRHOEA
  12. NEURONTIN [Concomitant]
     Dosage: 1-2CAPS.DOSE:600MG, 1 TABS DAILY AT BED TIME.
     Route: 048
  13. RIFAMPIN [Concomitant]
     Dosage: 1 CAPS.
     Route: 048
  14. ABILIFY [Suspect]
     Indication: BORDERLINE PERSONALITY DISORDER
     Dosage: DOSE:5MG,Q AM.DOSE:20MG DAILY.
  15. DEPAKOTE [Concomitant]
     Dosage: TID.DOSE:1000MG DAILY, TABS.
     Route: 048
  16. ARTANE [Concomitant]
     Indication: EXTRAPYRAMIDAL DISORDER
     Dosage: TID,PRN.
  17. CEREFOLIN [Concomitant]
  18. ROBAXIN [Concomitant]
  19. VICOPROFEN [Concomitant]
     Dosage: 1DF:7.5-200MG,TAB
     Route: 048
  20. VITAMIN B COMPLEX CAP [Concomitant]
     Dosage: 1DF:1TAB
     Route: 048
  21. ZYPREXA [Suspect]
     Indication: BIPOLAR I DISORDER
     Dosage: HS,2.5MG,PRN.
  22. REMERON [Concomitant]
  23. RISPERDAL [Concomitant]
  24. SEROQUEL [Concomitant]
  25. ZANAFLEX [Concomitant]
     Dosage: 1 TABS
     Route: 048
  26. LOESTRIN 1.5/30 [Concomitant]

REACTIONS (8)
  - AGITATION [None]
  - ANXIETY [None]
  - PHOTOSENSITIVITY REACTION [None]
  - VISION BLURRED [None]
  - WEIGHT DECREASED [None]
  - DYSPHAGIA [None]
  - EXTRAPYRAMIDAL DISORDER [None]
  - POOR QUALITY SLEEP [None]
